FAERS Safety Report 8500032-8 (Version None)
Quarter: 2012Q3

REPORT INFORMATION
  Report Type: 
  Country: None (occurrence: None)
  Receive Date: 20120710
  Receipt Date: 20120703
  Transmission Date: 20120928
  Serious: Yes (Other)
  Sender: FDA-Public Use
  Company Number: US-TEVA-346752USA

PATIENT
  Sex: Female

DRUGS (1)
  1. FENTORA [Suspect]
     Indication: CROHN'S DISEASE
     Route: 002

REACTIONS (3)
  - OFF LABEL USE [None]
  - DRUG PRESCRIBING ERROR [None]
  - SURGERY [None]
